FAERS Safety Report 7423988-3 (Version None)
Quarter: 2011Q2

REPORT INFORMATION
  Report Type: 
  Country: None (occurrence: None)
  Receive Date: 20110419
  Receipt Date: 20110412
  Transmission Date: 20111010
  Serious: Yes (Hospitalization)
  Sender: FDA-Public Use
  Company Number: B0713913A

PATIENT
  Sex: Male

DRUGS (1)
  1. MALANIL [Suspect]
     Indication: MALARIA PROPHYLAXIS
     Route: 065

REACTIONS (3)
  - SWELLING FACE [None]
  - ANGIOEDEMA [None]
  - ARTHROPOD BITE [None]
